FAERS Safety Report 5971296-X (Version None)
Quarter: 2008Q4

REPORT INFORMATION
  Report Type: 
  Country: None (occurrence: None)
  Receive Date: 20081128
  Receipt Date: 20081119
  Transmission Date: 20090506
  Serious: Yes (Hospitalization)
  Sender: FDA-Public Use
  Company Number: US-PFIZER INC-2008097774

PATIENT
  Age: 19 Year
  Sex: Female
  Weight: 52.8 kg

DRUGS (11)
  1. MARAVIROC [Suspect]
     Route: 048
     Dates: start: 20080630, end: 20081106
  2. RALTEGRAVIR [Suspect]
     Route: 048
     Dates: start: 20080630, end: 20081106
  3. DARUNAVIR [Suspect]
     Route: 048
     Dates: start: 20080630, end: 20081106
  4. RITONAVIR [Suspect]
     Route: 048
     Dates: start: 20080630, end: 20081106
  5. VALGANCICLOVIR HCL [Concomitant]
  6. SEPTRA DS [Concomitant]
  7. MULTI-VITAMINS [Concomitant]
  8. ZITHROMAX [Concomitant]
  9. PEPCID [Concomitant]
  10. PULMICORT-100 [Concomitant]
  11. ALBUTEROL [Concomitant]

REACTIONS (1)
  - THROMBOCYTOPENIA [None]
